FAERS Safety Report 11413466 (Version 1)
Quarter: 2015Q3

REPORT INFORMATION
  Report Type: Spontaneous
  Country: US (occurrence: US)
  Receive Date: 20150821
  Receipt Date: 20150821
  Transmission Date: 20151125
  Serious: No
  Sender: FDA-Public Use
  Company Number: US-ELI_LILLY_AND_COMPANY-US201105006026

PATIENT
  Sex: Female
  Weight: 136.5 kg

DRUGS (2)
  1. HUMULIN R [Suspect]
     Active Substance: INSULIN HUMAN
     Indication: DIABETES MELLITUS
     Dosage: 100 U, BID
  2. HUMULIN R [Suspect]
     Active Substance: INSULIN HUMAN
     Dosage: 50 U, BID

REACTIONS (4)
  - Emergency care [Unknown]
  - Incorrect dose administered [Unknown]
  - Drug effect increased [Unknown]
  - Blood glucose decreased [Unknown]
